FAERS Safety Report 25234836 (Version 1)
Quarter: 2025Q2

REPORT INFORMATION
  Report Type: Spontaneous
  Country: US (occurrence: None)
  Receive Date: 20250423
  Receipt Date: 20250423
  Transmission Date: 20250716
  Serious: Yes (Disabling)
  Sender: FDA-CTU
  Company Number: None

PATIENT
  Age: 71 Year
  Sex: Female
  Weight: 51.75 kg

DRUGS (3)
  1. DULOXETINE HYDROCHLORIDE [Suspect]
     Active Substance: DULOXETINE HYDROCHLORIDE
     Indication: Post herpetic neuralgia
     Route: 048
     Dates: start: 20250120, end: 20250321
  2. BUDESONIDE [Concomitant]
     Active Substance: BUDESONIDE
  3. PRAVASTATUN 40MG [Concomitant]

REACTIONS (4)
  - Diarrhoea [None]
  - Aspartate aminotransferase increased [None]
  - Alanine aminotransferase increased [None]
  - Colitis microscopic [None]

NARRATIVE: CASE EVENT DATE: 20250303
